FAERS Safety Report 7112350-9 (Version None)
Quarter: 2010Q4

REPORT INFORMATION
  Report Type: 
  Country: None (occurrence: None)
  Receive Date: 20101119
  Receipt Date: 20101019
  Transmission Date: 20110411
  Serious: No
  Sender: FDA-Public Use
  Company Number: A0876754A

PATIENT
  Age: 48 Year
  Sex: Female

DRUGS (5)
  1. AVODART [Suspect]
     Dosage: 1CAP SINGLE DOSE
     Route: 048
     Dates: start: 20100811, end: 20100811
  2. CARDIZEM [Concomitant]
     Route: 042
  3. ATIVAN [Concomitant]
  4. SLIDING SCALE INSULIN [Concomitant]
  5. CEFTAZIDIME [Concomitant]

REACTIONS (3)
  - DRUG ADMINISTRATION ERROR [None]
  - DRUG DISPENSING ERROR [None]
  - WRONG DRUG ADMINISTERED [None]
